FAERS Safety Report 23751285 (Version 1)
Quarter: 2024Q2

REPORT INFORMATION
  Report Type: Spontaneous
  Country: US (occurrence: None)
  Receive Date: 20240416
  Receipt Date: 20240416
  Transmission Date: 20240716
  Serious: No
  Sender: FDA-Public Use
  Company Number: None

PATIENT
  Sex: Female

DRUGS (1)
  1. CAPECITABINE [Suspect]
     Active Substance: CAPECITABINE
     Dates: start: 202403

REACTIONS (5)
  - Chest pain [None]
  - Cough [None]
  - Musculoskeletal pain [None]
  - Nausea [None]
  - Somnolence [None]
